FAERS Safety Report 8239800-9 (Version None)
Quarter: 2012Q1

REPORT INFORMATION
  Report Type: 
  Country: None (occurrence: None)
  Receive Date: 20120328
  Receipt Date: 20120322
  Transmission Date: 20120608
  Serious: Yes (Hospitalization)
  Sender: FDA-Public Use
  Company Number: ES-ASTELLAS-2012EU001853

PATIENT
  Age: 44 Year
  Sex: Female

DRUGS (8)
  1. CITICOLINE [Suspect]
     Dosage: 1 G, UID/QD
     Route: 065
     Dates: start: 20111001, end: 20111204
  2. DABIGATRAN ETEXILATE [Suspect]
     Indication: CARDIOVASCULAR DISORDER
     Dosage: 110 MG, BID
     Route: 048
     Dates: start: 20111011, end: 20111204
  3. FLECAINIDE ACETATE [Suspect]
     Dosage: 100 MG, BID
     Route: 048
     Dates: start: 20110601
  4. VESICARE [Suspect]
     Dosage: 5 MG, UID/QD
     Route: 048
     Dates: start: 20111001, end: 20111204
  5. KEPPRA [Suspect]
     Indication: CONVULSION
     Dosage: 1500 MG, BID
     Route: 048
  6. CLOPIDOGREL [Suspect]
     Indication: CARDIOVASCULAR DISORDER
     Dosage: 75 MG, UID/QD
     Route: 048
     Dates: start: 20110601, end: 20111204
  7. PAROXETINE HYDROCHLORIDE [Suspect]
     Dosage: 20 MG, UID/QD
     Route: 048
     Dates: start: 20110601, end: 20111204
  8. RANITIDINE [Suspect]
     Dosage: 150 MG, UID/QD
     Route: 065
     Dates: start: 20110601

REACTIONS (1)
  - HEPATITIS [None]
